FAERS Safety Report 4707014-2 (Version None)
Quarter: 2005Q3

REPORT INFORMATION
  Report Type: 
  Country: None (occurrence: None)
  Receive Date: 20050701
  Receipt Date: 20050620
  Transmission Date: 20060218
  Serious: Yes (Other)
  Sender: FDA-Public Use
  Company Number: 200504905

PATIENT
  Age: 61 Year
  Sex: Female

DRUGS (6)
  1. BOTOX [Suspect]
     Indication: MIGRAINE
     Dosage: 60 UNITS PRN IM
     Route: 030
     Dates: start: 20050513
  2. 40% GLYCOLIC ACID SOLUTION [Suspect]
     Indication: SKIN DISORDER
     Dates: start: 20050519
  3. FOSAMAX [Concomitant]
  4. ESTRACE VAGINAL [Concomitant]
  5. MIRALAX [Concomitant]
  6. ESTRADIOL [Concomitant]

REACTIONS (9)
  - BLOOD PRESSURE INCREASED [None]
  - CHILLS [None]
  - DYSKINESIA [None]
  - DYSPNOEA [None]
  - ERYTHEMA [None]
  - EYELID PTOSIS [None]
  - HISTAMINE ABNORMAL [None]
  - SWOLLEN TONGUE [None]
  - TRISMUS [None]
